FAERS Safety Report 15568073 (Version 12)
Quarter: 2020Q3

REPORT INFORMATION
  Report Type: Spontaneous
  Country: US (occurrence: US)
  Receive Date: 20181030
  Receipt Date: 20200703
  Transmission Date: 20201102
  Serious: Yes (Hospitalization)
  Sender: FDA-Public Use
  Company Number: US-BIOGEN-2018BI00650361

PATIENT
  Age: 16 Day
  Sex: Female
  Weight: 2.63 kg

DRUGS (4)
  1. SPINRAZA [Suspect]
     Active Substance: NUSINERSEN
     Route: 050
     Dates: start: 20181011
  2. PREDNISOLONE. [Concomitant]
     Active Substance: PREDNISOLONE
     Indication: PRODUCT USED FOR UNKNOWN INDICATION
     Route: 065
  3. SPINRAZA [Suspect]
     Active Substance: NUSINERSEN
     Indication: SPINAL MUSCULAR ATROPHY
     Route: 050
     Dates: start: 20181009
  4. ONASEMNOGENE ABEPARVOVEC [Concomitant]
     Active Substance: ONASEMNOGENE ABEPARVOVEC
     Indication: SPINAL MUSCULAR ATROPHY
     Route: 065
     Dates: start: 20190119

REACTIONS (27)
  - Angiopathy [Unknown]
  - Thrombosis [Unknown]
  - Osteomyelitis [Unknown]
  - Salivary hypersecretion [Not Recovered/Not Resolved]
  - Bronchial secretion retention [Recovered/Resolved]
  - Pyrexia [Recovered/Resolved]
  - Salmonella test positive [Recovered/Resolved]
  - Choking [Recovered/Resolved]
  - Respiratory disorder [Unknown]
  - Respiratory failure [Recovered/Resolved]
  - Finger amputation [Recovered/Resolved]
  - Skin discolouration [Recovered/Resolved]
  - Heart rate decreased [Not Recovered/Not Resolved]
  - Vomiting [Recovered/Resolved]
  - Cardio-respiratory arrest [Recovered/Resolved]
  - Peripheral ischaemia [Recovered/Resolved]
  - Macule [Not Recovered/Not Resolved]
  - Peptic ulcer [Unknown]
  - Haematochezia [Not Recovered/Not Resolved]
  - Heart rate increased [Unknown]
  - Scoliosis [Unknown]
  - Dyspnoea [Unknown]
  - Allergic colitis [Unknown]
  - Hypertension [Recovered/Resolved]
  - Tibia fracture [Unknown]
  - Extremity necrosis [Recovered/Resolved]
  - Oedema peripheral [Recovered/Resolved]

NARRATIVE: CASE EVENT DATE: 20181012
